FAERS Safety Report 11504990 (Version 1)
Quarter: 2015Q3

REPORT INFORMATION
  Report Type: Spontaneous
  Country: US (occurrence: US)
  Receive Date: 20150915
  Receipt Date: 20150915
  Transmission Date: 20151125
  Serious: No
  Sender: FDA-Public Use
  Company Number: US-ROCHE-771277

PATIENT
  Age: 48 Year
  Sex: Male

DRUGS (2)
  1. PEGASYS [Suspect]
     Active Substance: PEGINTERFERON ALFA-2A
     Indication: HEPATITIS C
     Dosage: PRE FILLED SYRINGE
     Route: 058
  2. RIBAVIRIN. [Suspect]
     Active Substance: RIBAVIRIN
     Indication: HEPATITIS C
     Route: 065

REACTIONS (5)
  - Nausea [Unknown]
  - Emotional distress [Not Recovered/Not Resolved]
  - Hypersomnia [Not Recovered/Not Resolved]
  - Asthenia [Not Recovered/Not Resolved]
  - Feeling of body temperature change [Not Recovered/Not Resolved]

NARRATIVE: CASE EVENT DATE: 20110405
